FAERS Safety Report 5642130-2 (Version None)
Quarter: 2008Q1

REPORT INFORMATION
  Report Type: 
  Country: None (occurrence: None)
  Receive Date: 20080227
  Receipt Date: 20080222
  Transmission Date: 20080703
  Serious: Yes (Life-Threatening, Hospitalization, Other)
  Sender: FDA-Public Use
  Company Number: US-PFIZER INC-2008005811

PATIENT
  Sex: Female
  Weight: 86.2 kg

DRUGS (11)
  1. EXUBERA [Suspect]
     Indication: DIABETES MELLITUS
     Route: 055
  2. LASIX [Concomitant]
     Route: 048
  3. WARFARIN SODIUM [Concomitant]
     Dosage: FREQ:2.5MG QD;5MG TUESDAY, THURSDAY, SATURDAY
     Route: 048
     Dates: start: 20070427
  4. VALSARTAN [Concomitant]
     Route: 048
     Dates: start: 20010814
  5. ACETYLSALICYLIC ACID [Concomitant]
     Route: 048
     Dates: start: 20010814
  6. VYTORIN [Concomitant]
     Dosage: FREQ:10/40 QD
     Route: 048
     Dates: start: 20070821
  7. PROTONIX [Concomitant]
     Route: 048
     Dates: start: 20060124
  8. MIRALAX [Concomitant]
     Dosage: FREQ:QD
     Route: 048
     Dates: start: 20070719
  9. CELEXA [Concomitant]
     Route: 048
     Dates: start: 20070821
  10. SEROQUEL [Concomitant]
     Route: 048
     Dates: start: 20070801
  11. SYNTHROID [Concomitant]
     Route: 048
     Dates: start: 20030131

REACTIONS (1)
  - CEREBROVASCULAR ACCIDENT [None]
